FAERS Safety Report 4850106-8 (Version None)
Quarter: 2005Q4

REPORT INFORMATION
  Report Type: 
  Country: None (occurrence: None)
  Receive Date: 20051107
  Receipt Date: 20050829
  Transmission Date: 20060501
  Serious: Yes (Other)
  Sender: FDA-Public Use
  Company Number: PHEH2005US09568

PATIENT
  Sex: Female

DRUGS (4)
  1. ESTRADERM [Suspect]
     Dates: start: 19920101, end: 19970101
  2. PREMPRO [Suspect]
     Dates: start: 19920101, end: 19970101
  3. PREMARIN [Suspect]
     Dates: start: 19920101, end: 19970101
  4. PROVERA [Suspect]
     Dates: start: 19920101, end: 19970101

REACTIONS (2)
  - BREAST CANCER [None]
  - INJURY [None]
